FAERS Safety Report 8491014-3 (Version None)
Quarter: 2012Q3

REPORT INFORMATION
  Report Type: 
  Country: None (occurrence: None)
  Receive Date: 20120706
  Receipt Date: 20120629
  Transmission Date: 20120928
  Serious: Yes (Other)
  Sender: FDA-Public Use
  Company Number: AU-NAPPMUNDI-USA-2012-0089329

PATIENT
  Sex: Female
  Weight: 72 kg

DRUGS (1)
  1. BUPRENORPHINE [Suspect]
     Indication: PAIN
     Dosage: 10 MCG/HR, UNK
     Route: 062
     Dates: start: 20110816, end: 20120202

REACTIONS (2)
  - APPLICATION SITE SCAR [None]
  - APPLICATION SITE VESICLES [None]
